FAERS Safety Report 4868556-2 (Version None)
Quarter: 2005Q4

REPORT INFORMATION
  Report Type: 
  Country: None (occurrence: None)
  Receive Date: 20051223
  Receipt Date: 20051104
  Transmission Date: 20060501
  Serious: Yes (Other)
  Sender: FDA-Public Use
  Company Number: 2005BH003312

PATIENT
  Age: 68 Year
  Sex: Female
  Weight: 68.9467 kg

DRUGS (8)
  1. ANTICOAGULANT CITRATE DEXTROSE [Suspect]
     Indication: DIALYSIS
     Dosage: 190 ML; EVERY HR; IV
     Route: 042
     Dates: start: 20051102
  2. 0.45% SODIUM CHLORIDE [Concomitant]
  3. INJECTION IN PLASTIC CONTAINER [Concomitant]
  4. NORMAL SALINE [Concomitant]
  5. POTASSIUM CHLORATE [Concomitant]
  6. MAGNESIUM SULFATE [Concomitant]
  7. SODIUM CHLORIDE 0.9% [Concomitant]
  8. DEXTROSE [Concomitant]

REACTIONS (2)
  - HYPOCALCAEMIA [None]
  - WRONG DRUG ADMINISTERED [None]
